FAERS Safety Report 18561166 (Version 1)
Quarter: 2020Q4

REPORT INFORMATION
  Report Type: Report from Study
  Country: BR (occurrence: BR)
  Receive Date: 20201130
  Receipt Date: 20201130
  Transmission Date: 20210114
  Serious: Yes (Hospitalization, Other)
  Sender: FDA-Public Use
  Company Number: BR-TAKEDA-BR202031812

PATIENT
  Sex: Male
  Weight: 28 kg

DRUGS (3)
  1. HEMO-8R [Suspect]
     Active Substance: ANTIHEMOPHILIC FACTOR, HUMAN RECOMBINANT
     Indication: FACTOR VIII DEFICIENCY
     Dosage: 500 INTERNATIONAL UNIT, 3X A WEEK
     Route: 042
     Dates: start: 20120726
  2. FEIBA NF [Suspect]
     Active Substance: ANTI-INHIBITOR COAGULANT COMPLEX
     Indication: PRODUCT USED FOR UNKNOWN INDICATION
     Dosage: UNK
     Route: 065
  3. HEMO-8R [Suspect]
     Active Substance: ANTIHEMOPHILIC FACTOR, HUMAN RECOMBINANT
     Dosage: UNK, SINCE THE THIRD DAY OF LIFE (AS REPORTED)
     Route: 065

REACTIONS (4)
  - Joint swelling [Recovering/Resolving]
  - Pain [Recovering/Resolving]
  - Osteoarthritis [Recovering/Resolving]
  - Gait inability [Recovering/Resolving]
